FAERS Safety Report 7722958-5 (Version None)
Quarter: 2011Q3

REPORT INFORMATION
  Report Type: 
  Country: None (occurrence: None)
  Receive Date: 20110901
  Receipt Date: 20110826
  Transmission Date: 20111222
  Serious: Yes (Death, Hospitalization)
  Sender: FDA-Public Use
  Company Number: CA-JNJFOC-20110804731

PATIENT
  Sex: Female

DRUGS (11)
  1. PREDNISONE [Concomitant]
  2. ZYTRAM [Concomitant]
  3. FOSAMAX [Concomitant]
  4. METHOTREXATE [Concomitant]
  5. FOLIC ACID [Concomitant]
  6. CALCIUM W/VITAMIN D NOS [Concomitant]
  7. SIMPONI [Suspect]
     Indication: RHEUMATOID ARTHRITIS
     Route: 058
     Dates: start: 20100211, end: 20110811
  8. INDERAL [Concomitant]
  9. PANTOPRAZOLE SODIUM [Concomitant]
  10. ATIVAN [Concomitant]
  11. LIPITOR [Concomitant]

REACTIONS (1)
  - INTRACRANIAL ANEURYSM [None]
